FAERS Safety Report 8986462 (Version 1)
Quarter: 2012Q4

REPORT INFORMATION
  Report Type: 
  Country: DE (occurrence: DE)
  Receive Date: 20121227
  Receipt Date: 20121227
  Transmission Date: 20130627
  Serious: Yes (Death, Life-Threatening, Other)
  Sender: FDA-Public Use
  Company Number: GXKR2012DE003931

PATIENT
  Age: 70 Year
  Sex: Female
  Weight: 62 kg

DRUGS (8)
  1. CALCIUM FOLINATE [Suspect]
     Indication: COLON CANCER
     Dosage: 260 mg in 500 ml NaCl
     Route: 042
     Dates: start: 20121015, end: 20121113
  2. CAMPTO [Suspect]
     Indication: COLON CANCER
     Dosage: 138 mg in 500 ml NaCl
     Route: 042
     Dates: start: 20121015, end: 20121113
  3. AVASTIN [Suspect]
     Indication: COLON CANCER
     Dosage: 313 mg in 250 ml NaCl
     Route: 042
     Dates: start: 20121015, end: 20121106
  4. 5-FU [Suspect]
     Indication: COLON CANCER
     Dosage: 3440 mg in NaCl in 24 h surefuser
     Route: 042
  5. INTRAFUSIN [Concomitant]
     Dosage: 1 l, UNK
     Dates: start: 20121119
  6. DEXAMETHASON ACIS//DEXAMETHASONE [Concomitant]
     Dosage: UNK UKN, UNK
     Route: 042
     Dates: start: 20121119
  7. NAVOBAN [Concomitant]
     Dosage: UNK UKN, UNK
     Route: 042
     Dates: start: 20121119
  8. RACECADOTRIL [Concomitant]
     Dosage: UNK UKN, UNK
     Dates: start: 20121119

REACTIONS (2)
  - Death [Fatal]
  - General physical health deterioration [None]
